FAERS Safety Report 7242917-9 (Version None)
Quarter: 2011Q1

REPORT INFORMATION
  Report Type: 
  Country: None (occurrence: None)
  Receive Date: 20110125
  Receipt Date: 20110112
  Transmission Date: 20110831
  Serious: Yes (Hospitalization)
  Sender: FDA-Public Use
  Company Number: FR-ELI_LILLY_AND_COMPANY-FR201101003554

PATIENT
  Age: 65 Year
  Sex: Female

DRUGS (2)
  1. ALCOHOL [Concomitant]
  2. CYMBALTA [Suspect]
     Indication: DEPRESSION
     Dosage: UNK, UNKNOWN
     Route: 048

REACTIONS (2)
  - TRANSAMINASES INCREASED [None]
  - CHOLESTASIS [None]
